FAERS Safety Report 10251806 (Version 2)
Quarter: 2014Q3

REPORT INFORMATION
  Report Type: Spontaneous
  Country: JP (occurrence: JP)
  Receive Date: 20140623
  Receipt Date: 20140721
  Transmission Date: 20150326
  Serious: Yes (Other)
  Sender: FDA-Public Use
  Company Number: JP-ORION CORPORATION ORION PHARMA-ENT 2014-0096

PATIENT
  Age: 72 Year
  Sex: Male

DRUGS (15)
  1. DIGOSIN [Concomitant]
     Active Substance: DIGOXIN
     Route: 065
     Dates: start: 20140521
  2. LIVALO [Suspect]
     Active Substance: PITAVASTATIN CALCIUM
     Route: 048
     Dates: start: 20140410, end: 20140521
  3. MAGLAX [Concomitant]
     Active Substance: MAGNESIUM OXIDE
     Route: 065
  4. WARFARIN [Concomitant]
     Active Substance: WARFARIN
     Route: 065
  5. NEODOPASTON [Concomitant]
     Active Substance: CARBIDOPA\LEVODOPA
     Route: 065
     Dates: start: 20101001
  6. FP [Concomitant]
     Active Substance: SELEGILINE HYDROCHLORIDE
     Route: 065
     Dates: start: 20101001
  7. BAYASPIRIN [Concomitant]
     Active Substance: ASPIRIN
     Route: 065
     Dates: start: 20101001
  8. LASIX [Concomitant]
     Active Substance: FUROSEMIDE
     Route: 065
     Dates: start: 20101001
  9. ALDACTONE [Concomitant]
     Active Substance: SPIRONOLACTONE
     Route: 065
     Dates: start: 20101001
  10. NIKORANMART [Concomitant]
     Active Substance: NICORANDIL
     Dosage: STRENGTH: 5 MG
     Route: 065
     Dates: start: 20101001, end: 20140410
  11. MIRAPEX [Concomitant]
     Active Substance: PRAMIPEXOLE DIHYDROCHLORIDE
     Dosage: STRENGTH: 1.5 MG
     Route: 065
     Dates: start: 20101001
  12. LANIRAPID [Suspect]
     Active Substance: METILDIGOXIN
     Route: 048
     Dates: start: 20140410, end: 20140521
  13. DIGOSIN [Concomitant]
     Active Substance: DIGOXIN
     Route: 065
     Dates: start: 20101001, end: 20140410
  14. NIKORANMART [Concomitant]
     Active Substance: NICORANDIL
     Route: 065
     Dates: start: 20140521
  15. COMTAN [Suspect]
     Active Substance: ENTACAPONE
     Indication: PARKINSON^S DISEASE
     Dosage: STRENGTH: 100 MG
     Route: 048
     Dates: start: 20101001

REACTIONS (1)
  - Parkinson^s disease [Recovering/Resolving]

NARRATIVE: CASE EVENT DATE: 20140521
